FAERS Safety Report 13870958 (Version 1)
Quarter: 2017Q3

REPORT INFORMATION
  Report Type: Spontaneous
  Country: US (occurrence: US)
  Receive Date: 20170816
  Receipt Date: 20170816
  Transmission Date: 20171127
  Serious: Yes (Hospitalization)
  Sender: FDA-Public Use
  Company Number: US-ROCHE-1975139

PATIENT
  Sex: Male

DRUGS (1)
  1. ACTEMRA [Suspect]
     Active Substance: TOCILIZUMAB
     Indication: TEMPORAL ARTERITIS
     Route: 065
     Dates: start: 2017

REACTIONS (4)
  - Colostomy [Not Recovered/Not Resolved]
  - Gastrointestinal perforation [Recovered/Resolved]
  - Colectomy [Recovered/Resolved]
  - Diverticulitis [Unknown]

NARRATIVE: CASE EVENT DATE: 2017
